FAERS Safety Report 5476369-6 (Version None)
Quarter: 2007Q4

REPORT INFORMATION
  Report Type: 
  Country: None (occurrence: None)
  Receive Date: 20071003
  Receipt Date: 20070921
  Transmission Date: 20080405
  Serious: Yes (Other)
  Sender: FDA-Public Use
  Company Number: GB-PFIZER INC-2007079404

PATIENT
  Age: 42 Year
  Sex: Female

DRUGS (1)
  1. VARENICLINE TABLETS [Suspect]

REACTIONS (2)
  - NEURALGIA [None]
  - PAIN [None]
